FAERS Safety Report 7421383-4 (Version None)
Quarter: 2011Q2

REPORT INFORMATION
  Report Type: 
  Country: None (occurrence: None)
  Receive Date: 20110407
  Receipt Date: 20110405
  Transmission Date: 20111010
  Serious: Yes (Death, Other)
  Sender: FDA-Public Use
  Company Number: 2010SP004327

PATIENT
  Age: 66 Year
  Sex: Male
  Weight: 59.6 kg

DRUGS (67)
  1. TEMODAL [Suspect]
     Indication: RECURRENT CANCER
     Dosage: SEE IMAGE PO
     Route: 048
     Dates: start: 20070214, end: 20070218
  2. TEMODAL [Suspect]
     Indication: ANAPLASTIC ASTROCYTOMA
     Dosage: SEE IMAGE PO
     Route: 048
     Dates: start: 20070214, end: 20070218
  3. TEMODAL [Suspect]
     Indication: RECURRENT CANCER
     Dosage: SEE IMAGE PO
     Route: 048
     Dates: start: 20070316, end: 20070320
  4. TEMODAL [Suspect]
     Indication: ANAPLASTIC ASTROCYTOMA
     Dosage: SEE IMAGE PO
     Route: 048
     Dates: start: 20070316, end: 20070320
  5. TEMODAL [Suspect]
     Indication: RECURRENT CANCER
     Dosage: SEE IMAGE PO
     Route: 048
     Dates: start: 20071024, end: 20071028
  6. TEMODAL [Suspect]
     Indication: ANAPLASTIC ASTROCYTOMA
     Dosage: SEE IMAGE PO
     Route: 048
     Dates: start: 20071024, end: 20071028
  7. TEMODAL [Suspect]
     Indication: RECURRENT CANCER
     Dosage: SEE IMAGE PO
     Route: 048
     Dates: start: 20070607, end: 20070611
  8. TEMODAL [Suspect]
     Indication: ANAPLASTIC ASTROCYTOMA
     Dosage: SEE IMAGE PO
     Route: 048
     Dates: start: 20070607, end: 20070611
  9. TEMODAL [Suspect]
     Indication: RECURRENT CANCER
     Dosage: SEE IMAGE PO
     Route: 048
     Dates: start: 20080312, end: 20080316
  10. TEMODAL [Suspect]
     Indication: ANAPLASTIC ASTROCYTOMA
     Dosage: SEE IMAGE PO
     Route: 048
     Dates: start: 20080312, end: 20080316
  11. TEMODAL [Suspect]
     Indication: RECURRENT CANCER
     Dosage: SEE IMAGE PO
     Route: 048
     Dates: start: 20090113, end: 20090117
  12. TEMODAL [Suspect]
     Indication: ANAPLASTIC ASTROCYTOMA
     Dosage: SEE IMAGE PO
     Route: 048
     Dates: start: 20090113, end: 20090117
  13. TEMODAL [Suspect]
     Indication: RECURRENT CANCER
     Dosage: SEE IMAGE PO
     Route: 048
     Dates: start: 20090212, end: 20090216
  14. TEMODAL [Suspect]
     Indication: ANAPLASTIC ASTROCYTOMA
     Dosage: SEE IMAGE PO
     Route: 048
     Dates: start: 20090212, end: 20090216
  15. TEMODAL [Suspect]
     Indication: RECURRENT CANCER
     Dosage: SEE IMAGE PO
     Route: 048
     Dates: start: 20070801, end: 20070805
  16. TEMODAL [Suspect]
     Indication: ANAPLASTIC ASTROCYTOMA
     Dosage: SEE IMAGE PO
     Route: 048
     Dates: start: 20070801, end: 20070805
  17. TEMODAL [Suspect]
     Indication: RECURRENT CANCER
     Dosage: SEE IMAGE PO
     Route: 048
     Dates: start: 20071219, end: 20071223
  18. TEMODAL [Suspect]
     Indication: ANAPLASTIC ASTROCYTOMA
     Dosage: SEE IMAGE PO
     Route: 048
     Dates: start: 20071219, end: 20071223
  19. TEMODAL [Suspect]
     Indication: RECURRENT CANCER
     Dosage: SEE IMAGE PO
     Route: 048
     Dates: start: 20070117, end: 20070121
  20. TEMODAL [Suspect]
     Indication: ANAPLASTIC ASTROCYTOMA
     Dosage: SEE IMAGE PO
     Route: 048
     Dates: start: 20070117, end: 20070121
  21. TEMODAL [Suspect]
     Indication: RECURRENT CANCER
     Dosage: SEE IMAGE PO
     Route: 048
     Dates: start: 20070510, end: 20070514
  22. TEMODAL [Suspect]
     Indication: ANAPLASTIC ASTROCYTOMA
     Dosage: SEE IMAGE PO
     Route: 048
     Dates: start: 20070510, end: 20070514
  23. TEMODAL [Suspect]
     Indication: RECURRENT CANCER
     Dosage: SEE IMAGE PO
     Route: 048
     Dates: start: 20070704, end: 20070708
  24. TEMODAL [Suspect]
     Indication: ANAPLASTIC ASTROCYTOMA
     Dosage: SEE IMAGE PO
     Route: 048
     Dates: start: 20070704, end: 20070708
  25. TEMODAL [Suspect]
     Indication: RECURRENT CANCER
     Dosage: SEE IMAGE PO
     Route: 048
     Dates: start: 20070829, end: 20070902
  26. TEMODAL [Suspect]
     Indication: ANAPLASTIC ASTROCYTOMA
     Dosage: SEE IMAGE PO
     Route: 048
     Dates: start: 20070829, end: 20070902
  27. TEMODAL [Suspect]
     Indication: RECURRENT CANCER
     Dosage: SEE IMAGE PO
     Route: 048
     Dates: start: 20080507, end: 20080511
  28. TEMODAL [Suspect]
     Indication: ANAPLASTIC ASTROCYTOMA
     Dosage: SEE IMAGE PO
     Route: 048
     Dates: start: 20080507, end: 20080511
  29. TEMODAL [Suspect]
     Indication: RECURRENT CANCER
     Dosage: SEE IMAGE PO
     Route: 048
     Dates: start: 20080701, end: 20080705
  30. TEMODAL [Suspect]
     Indication: ANAPLASTIC ASTROCYTOMA
     Dosage: SEE IMAGE PO
     Route: 048
     Dates: start: 20080701, end: 20080705
  31. TEMODAL [Suspect]
     Indication: RECURRENT CANCER
     Dosage: SEE IMAGE PO
     Route: 048
     Dates: start: 20081217, end: 20081221
  32. TEMODAL [Suspect]
     Indication: ANAPLASTIC ASTROCYTOMA
     Dosage: SEE IMAGE PO
     Route: 048
     Dates: start: 20081217, end: 20081221
  33. TEMODAL [Suspect]
     Indication: RECURRENT CANCER
     Dosage: SEE IMAGE PO
     Route: 048
     Dates: start: 20090409, end: 20090413
  34. TEMODAL [Suspect]
     Indication: ANAPLASTIC ASTROCYTOMA
     Dosage: SEE IMAGE PO
     Route: 048
     Dates: start: 20090409, end: 20090413
  35. TEMODAL [Suspect]
     Indication: RECURRENT CANCER
     Dosage: SEE IMAGE PO
     Route: 048
     Dates: start: 20070926, end: 20070930
  36. TEMODAL [Suspect]
     Indication: ANAPLASTIC ASTROCYTOMA
     Dosage: SEE IMAGE PO
     Route: 048
     Dates: start: 20070926, end: 20070930
  37. TEMODAL [Suspect]
     Indication: RECURRENT CANCER
     Dosage: SEE IMAGE PO
     Route: 048
     Dates: start: 20080827, end: 20080831
  38. TEMODAL [Suspect]
     Indication: ANAPLASTIC ASTROCYTOMA
     Dosage: SEE IMAGE PO
     Route: 048
     Dates: start: 20080827, end: 20080831
  39. TEMODAL [Suspect]
     Indication: RECURRENT CANCER
     Dosage: SEE IMAGE PO
     Route: 048
     Dates: start: 20080924, end: 20080928
  40. TEMODAL [Suspect]
     Indication: ANAPLASTIC ASTROCYTOMA
     Dosage: SEE IMAGE PO
     Route: 048
     Dates: start: 20080924, end: 20080928
  41. TEMODAL [Suspect]
     Indication: RECURRENT CANCER
     Dosage: SEE IMAGE PO
     Route: 048
     Dates: start: 20081119, end: 20081123
  42. TEMODAL [Suspect]
     Indication: ANAPLASTIC ASTROCYTOMA
     Dosage: SEE IMAGE PO
     Route: 048
     Dates: start: 20081119, end: 20081123
  43. TEMODAL [Suspect]
     Indication: RECURRENT CANCER
     Dosage: SEE IMAGE PO
     Route: 048
     Dates: start: 20080409, end: 20080413
  44. TEMODAL [Suspect]
     Indication: ANAPLASTIC ASTROCYTOMA
     Dosage: SEE IMAGE PO
     Route: 048
     Dates: start: 20080409, end: 20080413
  45. TEMODAL [Suspect]
     Indication: RECURRENT CANCER
     Dosage: SEE IMAGE PO
     Route: 048
     Dates: start: 20080604, end: 20080608
  46. TEMODAL [Suspect]
     Indication: ANAPLASTIC ASTROCYTOMA
     Dosage: SEE IMAGE PO
     Route: 048
     Dates: start: 20080604, end: 20080608
  47. TEMODAL [Suspect]
     Indication: RECURRENT CANCER
     Dosage: SEE IMAGE PO
     Route: 048
     Dates: start: 20090518, end: 20090522
  48. TEMODAL [Suspect]
     Indication: ANAPLASTIC ASTROCYTOMA
     Dosage: SEE IMAGE PO
     Route: 048
     Dates: start: 20090518, end: 20090522
  49. TEMODAL [Suspect]
     Indication: RECURRENT CANCER
     Dosage: SEE IMAGE PO
     Route: 048
     Dates: start: 20061219, end: 20061223
  50. TEMODAL [Suspect]
     Indication: ANAPLASTIC ASTROCYTOMA
     Dosage: SEE IMAGE PO
     Route: 048
     Dates: start: 20061219, end: 20061223
  51. TEMODAL [Suspect]
     Indication: RECURRENT CANCER
     Dosage: SEE IMAGE PO
     Route: 048
     Dates: start: 20071121, end: 20071125
  52. TEMODAL [Suspect]
     Indication: ANAPLASTIC ASTROCYTOMA
     Dosage: SEE IMAGE PO
     Route: 048
     Dates: start: 20071121, end: 20071125
  53. TEMODAL [Suspect]
     Indication: RECURRENT CANCER
     Dosage: SEE IMAGE PO
     Route: 048
     Dates: start: 20080116, end: 20080120
  54. TEMODAL [Suspect]
     Indication: ANAPLASTIC ASTROCYTOMA
     Dosage: SEE IMAGE PO
     Route: 048
     Dates: start: 20080116, end: 20080120
  55. TEMODAL [Suspect]
     Indication: RECURRENT CANCER
     Dosage: SEE IMAGE PO
     Route: 048
     Dates: start: 20081022, end: 20081026
  56. TEMODAL [Suspect]
     Indication: ANAPLASTIC ASTROCYTOMA
     Dosage: SEE IMAGE PO
     Route: 048
     Dates: start: 20081022, end: 20081026
  57. TEMODAL [Suspect]
     Indication: RECURRENT CANCER
     Dosage: SEE IMAGE PO
     Route: 048
     Dates: start: 20090312, end: 20090316
  58. TEMODAL [Suspect]
     Indication: ANAPLASTIC ASTROCYTOMA
     Dosage: SEE IMAGE PO
     Route: 048
     Dates: start: 20090312, end: 20090316
  59. TEMODAL [Suspect]
     Indication: RECURRENT CANCER
     Dosage: SEE IMAGE PO
     Route: 048
     Dates: start: 20070412, end: 20070416
  60. TEMODAL [Suspect]
     Indication: ANAPLASTIC ASTROCYTOMA
     Dosage: SEE IMAGE PO
     Route: 048
     Dates: start: 20070412, end: 20070416
  61. TEMODAL [Suspect]
     Indication: RECURRENT CANCER
     Dosage: SEE IMAGE PO
     Route: 048
     Dates: start: 20080213, end: 20080217
  62. TEMODAL [Suspect]
     Indication: ANAPLASTIC ASTROCYTOMA
     Dosage: SEE IMAGE PO
     Route: 048
     Dates: start: 20080213, end: 20080217
  63. TEMODAL [Suspect]
     Indication: RECURRENT CANCER
     Dosage: SEE IMAGE PO
     Route: 048
     Dates: start: 20080730, end: 20080803
  64. TEMODAL [Suspect]
     Indication: ANAPLASTIC ASTROCYTOMA
     Dosage: SEE IMAGE PO
     Route: 048
     Dates: start: 20080730, end: 20080803
  65. PENTCILLIN [Concomitant]
  66. DEXART [Concomitant]
  67. GLYCEOL [Concomitant]

REACTIONS (7)
  - GASTROENTERITIS ESCHERICHIA COLI [None]
  - CONVULSION [None]
  - DEHYDRATION [None]
  - HYPONATRAEMIA [None]
  - ANAPLASTIC ASTROCYTOMA [None]
  - NEOPLASM PROGRESSION [None]
  - WHITE BLOOD CELL COUNT INCREASED [None]
